FAERS Safety Report 25306143 (Version 1)
Quarter: 2025Q2

REPORT INFORMATION
  Report Type: Spontaneous
  Country: US (occurrence: None)
  Receive Date: 20250513
  Receipt Date: 20250513
  Transmission Date: 20250716
  Serious: Yes (Hospitalization)
  Sender: FDA-CTU
  Company Number: None

PATIENT
  Age: 68 Year
  Sex: Female
  Weight: 61.2 kg

DRUGS (4)
  1. GAMUNEX-C [Suspect]
     Active Substance: HUMAN IMMUNOGLOBULIN G
     Indication: Immunodeficiency common variable
     Route: 042
     Dates: start: 20250415, end: 20250415
  2. famotidine PF injection 40 mg IV once [Concomitant]
     Dates: start: 20250415, end: 20250415
  3. acetaminophen 650 mg PO [Concomitant]
     Dates: start: 20250415, end: 20250415
  4. dextrose 5% inufion 500 mL IV continuous [Concomitant]
     Dates: start: 20250415, end: 20250415

REACTIONS (23)
  - Pruritus [None]
  - Erythema [None]
  - Cough [None]
  - Dyspnoea [None]
  - Cervical radiculopathy [None]
  - Type V hyperlipidaemia [None]
  - Carotid artery occlusion [None]
  - Carotid artery stenosis [None]
  - Headache [None]
  - Pericardial effusion [None]
  - Localised oedema [None]
  - Cardiac murmur [None]
  - Essential hypertension [None]
  - Electrocardiogram abnormal [None]
  - Palpitations [None]
  - Diarrhoea [None]
  - Rectal haemorrhage [None]
  - Enterocolitis [None]
  - Clostridium difficile infection [None]
  - Gastritis [None]
  - Vomiting [None]
  - Gastrointestinal disorder [None]
  - Diverticulum intestinal [None]

NARRATIVE: CASE EVENT DATE: 20250415
